FAERS Safety Report 14714593 (Version 4)
Quarter: 2018Q2

REPORT INFORMATION
  Report Type: Spontaneous
  Country: GB (occurrence: GB)
  Receive Date: 20180404
  Receipt Date: 20180629
  Transmission Date: 20180711
  Serious: Yes (Other)
  Sender: FDA-Public Use
  Company Number: GB-PFIZER INC-2018136763

PATIENT
  Age: 16 Year
  Sex: Female
  Weight: 54.42 kg

DRUGS (3)
  1. TYLENOL [Suspect]
     Active Substance: ACETAMINOPHEN
     Dosage: 12000 MG, SINGLE (24 DF OF 500 MG)
  2. VALSARTAN. [Suspect]
     Active Substance: VALSARTAN
     Dosage: UNK
  3. IBUPROFEN. [Suspect]
     Active Substance: IBUPROFEN
     Dosage: 960 MG, SINGLE (32 DF OF 30 MG)

REACTIONS (1)
  - Suicide attempt [Unknown]
